FAERS Safety Report 6897772-3 (Version None)
Quarter: 2010Q3

REPORT INFORMATION
  Report Type: 
  Country: None (occurrence: None)
  Receive Date: 20100802
  Receipt Date: 20070905
  Transmission Date: 20110219
  Serious: Yes (Other)
  Sender: FDA-Public Use
  Company Number: US-PFIZER INC-2007059652

PATIENT
  Sex: Female
  Weight: 90.454 kg

DRUGS (7)
  1. LYRICA [Suspect]
     Indication: NEURALGIA
     Dates: start: 20060701
  2. AVANDIA [Interacting]
     Indication: DIABETES MELLITUS
     Dates: start: 19991001
  3. BENICAR [Concomitant]
     Dates: start: 20040101
  4. LIPITOR [Concomitant]
  5. ZETIA [Concomitant]
  6. LANTUS [Concomitant]
  7. GLUCOVANCE [Concomitant]

REACTIONS (6)
  - DRUG INTERACTION [None]
  - FACE OEDEMA [None]
  - GLYCOSYLATED HAEMOGLOBIN [None]
  - PAIN IN EXTREMITY [None]
  - SWELLING [None]
  - WEIGHT INCREASED [None]
